FAERS Safety Report 8252853-7 (Version None)
Quarter: 2012Q2

REPORT INFORMATION
  Report Type: 
  Country: None (occurrence: None)
  Receive Date: 20120402
  Receipt Date: 20120208
  Transmission Date: 20120825
  Serious: No
  Sender: FDA-Public Use
  Company Number: US-ABBOTT-12P-163-0903626-00

PATIENT
  Sex: Female
  Weight: 61.29 kg

DRUGS (1)
  1. ANDROGEL [Suspect]
     Indication: PRODUCT USED FOR UNKNOWN INDICATION

REACTIONS (10)
  - ACCIDENTAL EXPOSURE [None]
  - NAUSEA [None]
  - MOOD SWINGS [None]
  - WEIGHT INCREASED [None]
  - HEADACHE [None]
  - ABDOMINAL DISTENSION [None]
  - DIZZINESS [None]
  - MENSTRUATION DELAYED [None]
  - IRRITABILITY [None]
  - FATIGUE [None]
